FAERS Safety Report 21026570 (Version 1)
Quarter: 2022Q2

REPORT INFORMATION
  Report Type: Spontaneous
  Country: CN (occurrence: CN)
  Receive Date: 20220630
  Receipt Date: 20220630
  Transmission Date: 20220721
  Serious: Yes (Death, Other)
  Sender: FDA-Public Use
  Company Number: CN-NATCOUSA-2022-NATCOUSA-000053

PATIENT
  Age: 78 Year
  Sex: Female

DRUGS (1)
  1. LETROZOLE [Suspect]
     Active Substance: LETROZOLE
     Indication: Ovarian cancer metastatic
     Route: 048
     Dates: start: 201903, end: 201908

REACTIONS (5)
  - Metastases to lymph nodes [Unknown]
  - Carbohydrate antigen 125 increased [Unknown]
  - Therapy partial responder [Fatal]
  - Ovarian cancer stage III [Fatal]
  - Disease progression [Fatal]
